FAERS Safety Report 8246697-X (Version None)
Quarter: 2012Q1

REPORT INFORMATION
  Report Type: 
  Country: None (occurrence: None)
  Receive Date: 20120330
  Receipt Date: 20120323
  Transmission Date: 20120608
  Serious: Yes (Life-Threatening, Hospitalization)
  Sender: FDA-Public Use
  Company Number: US-BAYER-2011-079816

PATIENT
  Age: 19 Year
  Sex: Female
  Weight: 63.492 kg

DRUGS (3)
  1. YASMIN [Suspect]
     Indication: CONTRACEPTION
     Dosage: UNK
     Dates: start: 20050501, end: 20051001
  2. YASMIN [Suspect]
     Dosage: UNK
     Dates: start: 20070601, end: 20070901
  3. FAMOTIDINE [Concomitant]

REACTIONS (10)
  - GALLBLADDER NON-FUNCTIONING [None]
  - INJURY [None]
  - ANXIETY [None]
  - ANHEDONIA [None]
  - GALLBLADDER DISORDER [None]
  - BILE DUCT STONE [None]
  - CHOLECYSTITIS [None]
  - ORGAN FAILURE [None]
  - PAIN [None]
  - INTERNAL INJURY [None]
